FAERS Safety Report 8327147-1 (Version None)
Quarter: 2012Q2

REPORT INFORMATION
  Report Type: 
  Country: None (occurrence: None)
  Receive Date: 20120501
  Receipt Date: 20120419
  Transmission Date: 20120825
  Serious: Yes (Death, Hospitalization)
  Sender: FDA-Public Use
  Company Number: TW-BAXTER-2012BAX002378

PATIENT

DRUGS (1)
  1. EXTRANEAL [Suspect]
     Route: 033

REACTIONS (2)
  - SEPSIS [None]
  - INFECTIOUS PERITONITIS [None]
